FAERS Safety Report 4815361-9 (Version None)
Quarter: 2005Q4

REPORT INFORMATION
  Report Type: 
  Country: None (occurrence: None)
  Receive Date: 20051027
  Receipt Date: 20051012
  Transmission Date: 20060501
  Serious: Yes (Hospitalization)
  Sender: FDA-Public Use
  Company Number: DSA_81457_2005

PATIENT
  Age: 59 Year
  Sex: Female
  Weight: 81.6475 kg

DRUGS (12)
  1. XYREM [Suspect]
     Indication: NARCOLEPSY
     Dosage: 2.25 G TWICE NIGHTLY PO
     Route: 048
     Dates: start: 20050817, end: 20050906
  2. XYREM [Suspect]
     Indication: NARCOLEPSY
     Dosage: 4.5 MG NIGHTLY PO
     Route: 048
     Dates: start: 20050906, end: 20050913
  3. GLIPIZIDE [Concomitant]
  4. LISINOPRIL [Concomitant]
  5. NORVASC [Concomitant]
  6. PROVIGIL [Concomitant]
  7. TRAZODONE HCL [Concomitant]
  8. ATIVAN [Concomitant]
  9. LASIX [Concomitant]
  10. POTASSIUM [Concomitant]
  11. IMITREX [Concomitant]
  12. PRIMROSE OIL [Concomitant]

REACTIONS (3)
  - DEPRESSION [None]
  - SUICIDAL IDEATION [None]
  - TEARFULNESS [None]
